FAERS Safety Report 23772176 (Version 2)
Quarter: 2024Q2

REPORT INFORMATION
  Report Type: Spontaneous
  Country: PL (occurrence: PL)
  Receive Date: 20240423
  Receipt Date: 20240529
  Transmission Date: 20240716
  Serious: Yes (Death, Life-Threatening, Hospitalization, Other)
  Sender: FDA-Public Use
  Company Number: PL-APOTEX-2019AP006646

PATIENT
  Age: 31 Year
  Sex: Male

DRUGS (16)
  1. MYCOPHENOLATE MOFETIL [Suspect]
     Active Substance: MYCOPHENOLATE MOFETIL
     Indication: Immunosuppressant drug therapy
     Dosage: UNK
     Route: 065
  2. MYCOPHENOLATE MOFETIL [Suspect]
     Active Substance: MYCOPHENOLATE MOFETIL
     Dosage: 3 GRAM, ONCE A DAY
     Route: 065
     Dates: start: 2015, end: 2015
  3. PREDNISONE [Suspect]
     Active Substance: PREDNISONE
     Indication: Immunosuppressant drug therapy
     Dosage: 30 MILLIGRAM
     Route: 065
     Dates: start: 201411, end: 20150101
  4. TACROLIMUS [Suspect]
     Active Substance: TACROLIMUS
     Indication: Immunosuppressant drug therapy
     Dosage: UNK
     Route: 065
     Dates: start: 201411
  5. TACROLIMUS [Suspect]
     Active Substance: TACROLIMUS
     Dosage: UNK (PLASMA CONCERTATION WAS TARGETED TO BE APPROXIMATELY 5 NG/ML )
     Route: 065
     Dates: start: 2015, end: 2015
  6. METHYLPREDNISOLONE [Suspect]
     Active Substance: METHYLPREDNISOLONE
     Indication: Immunosuppressant drug therapy
     Dosage: 2750 MILLIGRAM, TOTAL
     Route: 042
     Dates: start: 201411
  7. METHYLPREDNISOLONE [Suspect]
     Active Substance: METHYLPREDNISOLONE
     Dosage: 40 MILLIGRAM, ONCE A DAY
     Route: 065
     Dates: start: 2015
  8. METHYLPREDNISOLONE [Suspect]
     Active Substance: METHYLPREDNISOLONE
     Dosage: 120 MILLIGRAM
     Route: 065
     Dates: start: 2015, end: 2015
  9. VELCADE [Suspect]
     Active Substance: BORTEZOMIB
     Indication: Transplant rejection
     Dosage: 1.25 MILLIGRAM PER MILLILITRE (4 X 2 MG 1.25 MG/M^2 OF BODY SURFACE )
     Route: 042
     Dates: start: 2014
  10. VELCADE [Suspect]
     Active Substance: BORTEZOMIB
     Indication: Transplant rejection
  11. THYMOCYTE IMMUNE GLOBULIN NOS [Suspect]
     Active Substance: THYMOCYTE IMMUNE GLOBULIN NOS
     Indication: Immunosuppressant drug therapy
     Dosage: 800 MILLIGRAM (TOTAL)
     Route: 065
     Dates: start: 201411, end: 2014
  12. GANCICLOVIR [Concomitant]
     Active Substance: GANCICLOVIR
     Indication: Prophylaxis
     Dosage: 5 MG/KG, UNK
     Route: 042
  13. GANCICLOVIR [Concomitant]
     Active Substance: GANCICLOVIR
     Indication: Cytomegalovirus infection
  14. VALGANCICLOVIR [Concomitant]
     Active Substance: VALGANCICLOVIR
     Indication: Prophylaxis
     Dosage: 450 MG, UNK
     Route: 042
  15. VALGANCICLOVIR [Concomitant]
     Active Substance: VALGANCICLOVIR
     Indication: Cytomegalovirus infection
  16. MESALAMINE [Concomitant]
     Active Substance: MESALAMINE
     Indication: Colitis ulcerative
     Dosage: UNK
     Route: 065
     Dates: end: 2015

REACTIONS (12)
  - Cytomegalovirus infection [Fatal]
  - Pneumocystis jirovecii infection [Fatal]
  - Respiratory distress [Fatal]
  - Liver transplant rejection [Recovered/Resolved]
  - Interstitial lung disease [Unknown]
  - Superinfection bacterial [Unknown]
  - Pulmonary fibrosis [Not Recovered/Not Resolved]
  - Pancytopenia [Unknown]
  - Hypogammaglobulinaemia [Unknown]
  - Upper respiratory tract infection [Unknown]
  - Influenza like illness [Unknown]
  - Drug ineffective [Unknown]

NARRATIVE: CASE EVENT DATE: 20141201
